FAERS Safety Report 5807675-0 (Version None)
Quarter: 2008Q3

REPORT INFORMATION
  Report Type: 
  Country: None (occurrence: None)
  Receive Date: 20080711
  Receipt Date: 20080630
  Transmission Date: 20090109
  Serious: Yes (Hospitalization)
  Sender: FDA-Public Use
  Company Number: FR-GENENTECH-263871

PATIENT
  Sex: Female

DRUGS (4)
  1. AVASTIN [Suspect]
     Indication: DRUG USE FOR UNKNOWN INDICATION
     Dates: start: 20080506
  2. FOLINIC ACID [Suspect]
     Indication: DRUG USE FOR UNKNOWN INDICATION
     Dates: start: 20080506
  3. FLUOROURACIL [Suspect]
     Indication: DRUG USE FOR UNKNOWN INDICATION
     Dates: start: 20080506
  4. CAMPTO [Suspect]
     Indication: DRUG USE FOR UNKNOWN INDICATION
     Dates: start: 20080506

REACTIONS (2)
  - NEUTROPENIA [None]
  - PYREXIA [None]
